FAERS Safety Report 5794514-X (Version None)
Quarter: 2008Q2

REPORT INFORMATION
  Report Type: 
  Country: None (occurrence: None)
  Receive Date: 20080625
  Receipt Date: 20080610
  Transmission Date: 20081010
  Serious: Yes (Other)
  Sender: FDA-Public Use
  Company Number: S08-FRA-02145-01

PATIENT
  Sex: Female
  Weight: 55 kg

DRUGS (4)
  1. SEROPLEX (ESCITALOPRAM) [Suspect]
     Indication: DRUG USE FOR UNKNOWN INDICATION
     Dosage: 5 MG QD; PO
     Route: 048
  2. CLONAZEPAM [Suspect]
     Indication: DRUG USE FOR UNKNOWN INDICATION
     Dates: start: 20071001
  3. LAMALINE [Suspect]
     Indication: DRUG USE FOR UNKNOWN INDICATION
  4. VASTAREL [Suspect]
     Indication: DRUG USE FOR UNKNOWN INDICATION
     Dosage: 35 MG BID; PO
     Route: 048

REACTIONS (34)
  - ABNORMAL BEHAVIOUR [None]
  - AFFECTIVE DISORDER [None]
  - AGGRESSION [None]
  - AGITATION [None]
  - ALOPECIA [None]
  - ANOREXIA [None]
  - ANXIETY [None]
  - ASTHENIA [None]
  - BULIMIA NERVOSA [None]
  - CHEST DISCOMFORT [None]
  - CONSTIPATION [None]
  - CRYING [None]
  - DISORIENTATION [None]
  - DRUG HYPERSENSITIVITY [None]
  - EYE PAIN [None]
  - FATIGUE [None]
  - FEELING COLD [None]
  - GASTROINTESTINAL DISORDER [None]
  - GENERAL PHYSICAL HEALTH DETERIORATION [None]
  - HEADACHE [None]
  - HYPERHIDROSIS [None]
  - HYPOGLYCAEMIA [None]
  - INFLUENZA LIKE ILLNESS [None]
  - INSOMNIA [None]
  - MUSCULOSKELETAL PAIN [None]
  - NASAL CONGESTION [None]
  - NAUSEA [None]
  - RENAL PAIN [None]
  - RESPIRATORY FAILURE [None]
  - SCREAMING [None]
  - SKIN REACTION [None]
  - SLEEP DISORDER [None]
  - TINNITUS [None]
  - VISUAL DISTURBANCE [None]
